FAERS Safety Report 4784888-0 (Version None)
Quarter: 2005Q3

REPORT INFORMATION
  Report Type: 
  Country: None (occurrence: None)
  Receive Date: 20050928
  Receipt Date: 20050916
  Transmission Date: 20060218
  Serious: Yes (Other)
  Sender: FDA-Public Use
  Company Number: 2005130637

PATIENT
  Age: 68 Year
  Sex: Female
  Weight: 90.7194 kg

DRUGS (5)
  1. CADUET [Suspect]
     Indication: BLOOD CHOLESTEROL INCREASED
     Dosage: 10MG/10MG (1 IN 1 D
     Dates: start: 20050101, end: 20050908
  2. CADUET [Suspect]
     Indication: HYPERTENSION
     Dosage: 10MG/10MG (1 IN 1 D
     Dates: start: 20050101, end: 20050908
  3. TRIAMTERENE (TRIAMTERENE) [Concomitant]
  4. VALSARTAN [Concomitant]
  5. POTASSIUM (POTASSIUM) [Concomitant]

REACTIONS (9)
  - DIFFICULTY IN WALKING [None]
  - DYSPNOEA [None]
  - FLUID RETENTION [None]
  - HYPERAESTHESIA [None]
  - OEDEMA PERIPHERAL [None]
  - PAIN IN EXTREMITY [None]
  - SWELLING [None]
  - WALKING AID USER [None]
  - WEIGHT INCREASED [None]
